FAERS Safety Report 8485825 (Version 7)
Quarter: 2014Q1

REPORT INFORMATION
  Report Type: Spontaneous
  Country: US (occurrence: US)
  Receive Date: 20120330
  Receipt Date: 20140121
  Transmission Date: 20141002
  Serious: Yes (Hospitalization, Disabling, Other)
  Sender: FDA-Public Use
  Company Number: US-009507513-1203USA03349

PATIENT
  Sex: Female
  Weight: 76.64 kg

DRUGS (4)
  1. FOSAMAX [Suspect]
     Indication: OSTEOPOROSIS
     Dosage: 10 MG, UNK
     Route: 048
     Dates: start: 1995
  2. FOSAMAX [Suspect]
     Indication: OSTEOPENIA
     Dosage: 70 MG, UNK
     Route: 048
     Dates: end: 200807
  3. VITAMINS (UNSPECIFIED) [Concomitant]
     Dosage: UNK, QD
     Dates: start: 1997
  4. CALCIUM D (CALCIUM CARBONATE (+) CHOLECALCIFEROL) [Concomitant]
     Dosage: UNK, QD
     Dates: start: 1997

REACTIONS (61)
  - Stress fracture [Unknown]
  - Internal fixation of fracture [Unknown]
  - Osteoporosis [Unknown]
  - Low turnover osteopathy [Unknown]
  - Femur fracture [Unknown]
  - Breast cancer [Unknown]
  - Urinary tract infection [Unknown]
  - Hydronephrosis [Unknown]
  - Bladder outlet obstruction [Unknown]
  - Breast cancer [Unknown]
  - Neurogenic bladder [Unknown]
  - Invasive ductal breast carcinoma [Unknown]
  - Tonsillectomy [Unknown]
  - Adenoidectomy [Unknown]
  - Rhinoplasty [Unknown]
  - Hypertension [Unknown]
  - Femur fracture [Recovering/Resolving]
  - Headache [Unknown]
  - Type V hyperlipidaemia [Unknown]
  - Parkinson^s disease [Unknown]
  - Dyspnoea [Not Recovered/Not Resolved]
  - Thyroid neoplasm [Unknown]
  - Biopsy thyroid gland abnormal [Unknown]
  - Diverticulum intestinal [Unknown]
  - Hepatic steatosis [Unknown]
  - Atelectasis [Unknown]
  - Spinal osteoarthritis [Unknown]
  - Hiatus hernia [Unknown]
  - Nephrolithiasis [Unknown]
  - Renal cyst [Unknown]
  - Blood glucose increased [Unknown]
  - Hypokalaemia [Unknown]
  - Osteoarthritis [Unknown]
  - Fatigue [Unknown]
  - Memory impairment [Unknown]
  - Osteoarthritis [Unknown]
  - Pulmonary mass [Unknown]
  - Acquired diaphragmatic eventration [Unknown]
  - Dementia Alzheimer^s type [Unknown]
  - Aortic valve incompetence [Unknown]
  - Pollakiuria [Unknown]
  - Craniocerebral injury [Unknown]
  - Presyncope [Unknown]
  - Bradycardia [Unknown]
  - Fall [Unknown]
  - Rib fracture [Unknown]
  - Contusion [Unknown]
  - Dermatitis allergic [Unknown]
  - Sciatica [Unknown]
  - Angina pectoris [Unknown]
  - Limb injury [Unknown]
  - Device failure [Unknown]
  - Lipoma excision [Unknown]
  - Electrocardiogram low voltage [Unknown]
  - Tooth extraction [Unknown]
  - Impaired healing [Unknown]
  - Back pain [Unknown]
  - Neck pain [Unknown]
  - Nausea [Unknown]
  - Dizziness [Unknown]
  - Treatment failure [Unknown]
